FAERS Safety Report 9298185 (Version 2)
Quarter: 2013Q3

REPORT INFORMATION
  Report Type: Spontaneous
  Country: US (occurrence: None)
  Receive Date: 20130515
  Receipt Date: 20130716
  Transmission Date: 20140515
  Serious: Yes (Other)
  Sender: FDA-Public Use
  Company Number: JPI-P-031660

PATIENT
  Age: 30 Year
  Sex: Male

DRUGS (4)
  1. XYREM [Suspect]
     Indication: CATAPLEXY
     Dosage: (2.25GM, 2 IN 1D),
     Route: 048
     Dates: start: 20090828
  2. ALPRAZOLAM [Concomitant]
  3. HYDROCODONE BITARTRATE/ACETAMINOPHEN [Concomitant]
  4. FLUOXETINE (CAPSULES) [Concomitant]

REACTIONS (5)
  - Headache [None]
  - Respiratory arrest [None]
  - Cataplexy [None]
  - Grand mal convulsion [None]
  - Therapy cessation [None]
